FAERS Safety Report 13434164 (Version 3)
Quarter: 2017Q4

REPORT INFORMATION
  Report Type: Report from Study
  Country: CO (occurrence: CO)
  Receive Date: 20170412
  Receipt Date: 20171025
  Transmission Date: 20180320
  Serious: Yes (Other)
  Sender: FDA-Public Use
  Company Number: PHHY2015CO142450

PATIENT
  Age: 53 Year
  Sex: Female
  Weight: 57 kg

DRUGS (6)
  1. AFINITOR [Suspect]
     Active Substance: EVEROLIMUS
     Dosage: 10 MG, QD (EVERY 24 HOURS)
     Route: 048
  2. AFINITOR [Suspect]
     Active Substance: EVEROLIMUS
     Dosage: 10 MG, QD
     Route: 048
     Dates: end: 20170921
  3. AFINITOR [Suspect]
     Active Substance: EVEROLIMUS
     Indication: RENAL CANCER
     Dosage: 10 MG, QOD (EVERY OTHER DAY)
     Route: 048
  4. LANREOTIDE [Concomitant]
     Active Substance: LANREOTIDE
     Indication: NEUROENDOCRINE TUMOUR
     Dosage: 120 MG, QMO (ONCE A MONTH)
     Route: 058
  5. AFINITOR [Suspect]
     Active Substance: EVEROLIMUS
     Dosage: 10 MG, (FROM MONDAY TO FRIDAY AND NOT DURING THE WEEKEND.)
     Route: 048
     Dates: end: 20170729
  6. AFINITOR [Suspect]
     Active Substance: EVEROLIMUS
     Indication: NEUROENDOCRINE TUMOUR
     Dosage: 10 MG, QD
     Route: 048
     Dates: start: 20150903

REACTIONS (14)
  - Laceration [Unknown]
  - Tongue discomfort [Recovering/Resolving]
  - Blood bilirubin increased [Recovering/Resolving]
  - Malignant neoplasm progression [Unknown]
  - Drug-induced liver injury [Unknown]
  - Hepatotoxicity [Unknown]
  - Product use issue [Unknown]
  - Transaminases increased [Unknown]
  - White blood cell count decreased [Unknown]
  - Dry skin [Unknown]
  - Diarrhoea [Unknown]
  - Liver disorder [Unknown]
  - Stomatitis [Unknown]
  - Neuroendocrine tumour [Unknown]

NARRATIVE: CASE EVENT DATE: 20150903
